FAERS Safety Report 8334772 (Version 2)
Quarter: 2013Q4

REPORT INFORMATION
  Report Type: Spontaneous
  Country: US (occurrence: US)
  Receive Date: 20120112
  Receipt Date: 20131202
  Transmission Date: 20140711
  Serious: Yes (Other)
  Sender: FDA-Public Use
  Company Number: US-ASTRAZENECA-2012SE01736

PATIENT
  Age: 22648 Day
  Sex: Female
  Weight: 51.7 kg

DRUGS (6)
  1. SYMBICORT PMDI [Suspect]
     Indication: CHRONIC OBSTRUCTIVE PULMONARY DISEASE
     Dosage: UNKNOWN FREQUENCY
     Route: 055
  2. SYMBICORT PMDI [Suspect]
     Indication: CHRONIC OBSTRUCTIVE PULMONARY DISEASE
     Dosage: 160/4.5, 2 PUFFS BID
     Route: 055
     Dates: start: 2006
  3. BYSTOLIC [Concomitant]
     Indication: BLOOD PRESSURE ABNORMAL
  4. ESTROGEN [Concomitant]
     Indication: VULVOVAGINAL DRYNESS
  5. PROGESTERON [Concomitant]
     Indication: VULVOVAGINAL DRYNESS
  6. PROAIR [Concomitant]
     Indication: EMERGENCY CARE

REACTIONS (7)
  - Upper limb fracture [Unknown]
  - Wrist fracture [Unknown]
  - Fall [Unknown]
  - Hypertension [Unknown]
  - Circumstance or information capable of leading to medication error [Unknown]
  - Intentional drug misuse [Unknown]
  - Drug dose omission [Unknown]
